FAERS Safety Report 16466316 (Version 2)
Quarter: 2019Q2

REPORT INFORMATION
  Report Type: Spontaneous
  Country: US (occurrence: US)
  Receive Date: 20190622
  Receipt Date: 20190625
  Transmission Date: 20190711
  Serious: Yes (Death)
  Sender: FDA-Public Use
  Company Number: US-ROCHE-2342054

PATIENT
  Age: 62 Year
  Sex: Female

DRUGS (3)
  1. ZARXIO [Concomitant]
     Active Substance: FILGRASTIM-SNDZ
  2. XELODA [Suspect]
     Active Substance: CAPECITABINE
     Indication: PRODUCT USED FOR UNKNOWN INDICATION
     Route: 048
     Dates: start: 20190429, end: 20190501
  3. FASLODEX [Concomitant]
     Active Substance: FULVESTRANT

REACTIONS (1)
  - Death [Fatal]

NARRATIVE: CASE EVENT DATE: 20190614
